FAERS Safety Report 8942398 (Version 2)
Quarter: 2013Q1

REPORT INFORMATION
  Report Type: Spontaneous
  Country: DE (occurrence: None)
  Receive Date: 20121121
  Receipt Date: 20121218
  Transmission Date: 20140127
  Serious: Yes (Life-Threatening, Hospitalization)
  Sender: FDA-Public Use
  Company Number: ACO_33031_2012

PATIENT
  Age: 42 Year
  Sex: Male

DRUGS (2)
  1. FAMPYRA (DALFAMPRIDINE) TABLET, 10MG [Suspect]
     Indication: MUSCLE SPASTICITY
     Route: 048
     Dates: start: 20120828, end: 20120830
  2. TRIMIPRAMINE (TRIMIPRAMINE) [Concomitant]

REACTIONS (7)
  - Suicide attempt [None]
  - Anxiety [None]
  - Sleep disorder [None]
  - Off label use [None]
  - Self-medication [None]
  - Sleep disorder [None]
  - Incorrect dose administered [None]
